FAERS Safety Report 16861636 (Version 1)
Quarter: 2019Q3

REPORT INFORMATION
  Report Type: Spontaneous
  Country: US (occurrence: US)
  Receive Date: 20190927
  Receipt Date: 20190927
  Transmission Date: 20191005
  Serious: No
  Sender: FDA-Public Use
  Company Number: US-AMGEN-USASP2019157830

PATIENT
  Age: 57 Year
  Sex: Female

DRUGS (2)
  1. BOTOX [Concomitant]
     Active Substance: ONABOTULINUMTOXINA
     Dosage: UNK
     Dates: start: 20190914
  2. AIMOVIG [Suspect]
     Active Substance: ERENUMAB-AOOE
     Indication: MIGRAINE PROPHYLAXIS
     Dosage: 70 MILLIGRAM, QMO (EVERY 30 DAYS)
     Route: 065
     Dates: start: 20190824

REACTIONS (5)
  - Eye contusion [Recovered/Resolved]
  - Eye swelling [Recovered/Resolved]
  - Epistaxis [Recovered/Resolved]
  - Ocular hyperaemia [Recovered/Resolved]
  - Incorrect disposal of product [Unknown]

NARRATIVE: CASE EVENT DATE: 20190824
